FAERS Safety Report 7095461-6 (Version None)
Quarter: 2010Q4

REPORT INFORMATION
  Report Type: 
  Country: None (occurrence: None)
  Receive Date: 20101102
  Receipt Date: 20101020
  Transmission Date: 20110411
  Serious: Yes (Hospitalization)
  Sender: FDA-Public Use
  Company Number: 020000

PATIENT
  Sex: Female

DRUGS (5)
  1. CIMZIA [Suspect]
     Indication: RHEUMATOID ARTHRITIS
     Dosage: (STUDY 275-08-003 SUBCUTANEOUS) ; (200 MG 1X/2 WEEKS SUBCUTANEOUS) ; (SUBCUTANEOUS)
     Route: 058
     Dates: start: 20100108
  2. CIMZIA [Suspect]
     Indication: RHEUMATOID ARTHRITIS
     Dosage: (STUDY 275-08-003 SUBCUTANEOUS) ; (200 MG 1X/2 WEEKS SUBCUTANEOUS) ; (SUBCUTANEOUS)
     Route: 058
     Dates: start: 20100427
  3. CIMZIA [Suspect]
     Indication: RHEUMATOID ARTHRITIS
     Dosage: (STUDY 275-08-003 SUBCUTANEOUS) ; (200 MG 1X/2 WEEKS SUBCUTANEOUS) ; (SUBCUTANEOUS)
     Route: 058
     Dates: start: 20101012
  4. LOXOPROFEN SODIUM [Concomitant]
  5. MECOBALAMIN [Concomitant]

REACTIONS (4)
  - HEADACHE [None]
  - HERPES ZOSTER [None]
  - NECK PAIN [None]
  - PALLOR [None]
